FAERS Safety Report 7822929-4 (Version None)
Quarter: 2011Q4

REPORT INFORMATION
  Report Type: 
  Country: None (occurrence: None)
  Receive Date: 20111018
  Receipt Date: 20101027
  Transmission Date: 20120403
  Serious: No
  Sender: FDA-Public Use
  Company Number: US-ASTRAZENECA-2010SE51011

PATIENT
  Age: 77 Year
  Sex: Male
  Weight: 51.7 kg

DRUGS (3)
  1. SPIRIVA [Concomitant]
     Indication: DYSPNOEA
     Dosage: DAILY
     Route: 055
  2. SYMBICORT [Suspect]
     Indication: BRONCHITIS CHRONIC
     Dosage: 160/4.5 MCG, UNKNOWN
     Route: 055
  3. UNKNOWN ANTIBIOTIC [Concomitant]
     Indication: COUGH
     Route: 048

REACTIONS (4)
  - DRUG INEFFECTIVE [None]
  - CHEST X-RAY ABNORMAL [None]
  - COUGH [None]
  - DYSPNOEA [None]
